FAERS Safety Report 16167029 (Version 1)
Quarter: 2019Q2

REPORT INFORMATION
  Report Type: Spontaneous
  Country: NL (occurrence: NL)
  Receive Date: 20190408
  Receipt Date: 20190408
  Transmission Date: 20190711
  Serious: Yes (Other)
  Sender: FDA-Public Use
  Company Number: NL-009507513-1904NLD001852

PATIENT
  Age: 63 Year
  Sex: Male

DRUGS (3)
  1. LATUDA [Suspect]
     Active Substance: LURASIDONE HYDROCHLORIDE
     Dosage: 74 MILLIGRAM, QD
     Route: 048
     Dates: start: 20181017
  2. LATUDA [Suspect]
     Active Substance: LURASIDONE HYDROCHLORIDE
     Indication: DEPRESSION
     Dosage: 37 MILLIGRAM, QD
     Route: 048
     Dates: start: 20180912, end: 20181017
  3. MIRTAZAPINE. [Suspect]
     Active Substance: MIRTAZAPINE
     Indication: DEPRESSION
     Dosage: 45 MILLIGRAM
     Route: 065
     Dates: start: 2008

REACTIONS (2)
  - Off label use [Not Recovered/Not Resolved]
  - Urinary retention [Unknown]
